FAERS Safety Report 7834580-0 (Version None)
Quarter: 2011Q4

REPORT INFORMATION
  Report Type: 
  Country: None (occurrence: None)
  Receive Date: 20111020
  Receipt Date: 20111010
  Transmission Date: 20120403
  Serious: Yes (Other)
  Sender: FDA-Public Use
  Company Number: 1000022527

PATIENT
  Age: 85 Year
  Sex: Male
  Weight: 90 kg

DRUGS (7)
  1. PANTOZOL (ERYTHROMYCIN ETHYLSUCCINATE, SULFAFURAZOLE) (ERYTHROMYCIN ET [Concomitant]
  2. FOSFOMYCIN (FOSFOMYCIN TROMETAMOL) (3 GRAM, GRANULATE) [Suspect]
     Indication: URINARY TRACT INFECTION
     Dosage: (3 GM,ONCE),ORAL ; ORAL
     Route: 048
     Dates: start: 20110718, end: 20110718
  3. MACROGOL HEXAL (MACROGOL) (MACROGOL) [Concomitant]
  4. ACC (ACETYLCYSTEINE SODIUM) (ACETYLCYSTEINE SODIUM) [Concomitant]
  5. BIOHEXAL (BISOPROLOL FUMARATE) (BISOPROLOL FUMARATE) [Concomitant]
  6. DELIX (RAMIPRIL) (RAMIPRIL) [Concomitant]
  7. IBUPROFEN [Concomitant]

REACTIONS (5)
  - ASTHENIA [None]
  - PAIN [None]
  - DYSURIA [None]
  - DIARRHOEA [None]
  - OFF LABEL USE [None]
